FAERS Safety Report 4525676-X (Version None)
Quarter: 2004Q4

REPORT INFORMATION
  Report Type: 
  Country: None (occurrence: None)
  Receive Date: 20041116
  Receipt Date: 20041014
  Transmission Date: 20050328
  Serious: No
  Sender: FDA-Public Use
  Company Number: S04-USA-06751-01

PATIENT
  Age: 81 Year
  Sex: Male

DRUGS (6)
  1. NAMENDA [Suspect]
     Indication: DEMENTIA ALZHEIMER'S TYPE
     Dosage: 5 MG QD PO
     Route: 048
     Dates: start: 20041014
  2. CARBIDOPA AND LEVODOPA [Concomitant]
  3. DETROL 9TOLTERODINE L-TARTRATE) [Concomitant]
  4. CELEXA 9CITALOPRAM HYDROBROMIDE) [Concomitant]
  5. SEROQUEL [Concomitant]
  6. BUSPAR [Concomitant]

REACTIONS (2)
  - MEMORY IMPAIRMENT [None]
  - MYDRIASIS [None]
